FAERS Safety Report 4954497-9 (Version None)
Quarter: 2006Q1

REPORT INFORMATION
  Report Type: 
  Country: None (occurrence: None)
  Receive Date: 20060327
  Receipt Date: 20060316
  Transmission Date: 20060701
  Serious: Yes (Other)
  Sender: FDA-Public Use
  Company Number: GB-BRISTOL-MYERS SQUIBB COMPANY-13316237

PATIENT
  Sex: Female

DRUGS (2)
  1. REYATAZ [Suspect]
     Route: 048
  2. TRUVADA [Concomitant]

REACTIONS (2)
  - DIFFICULTY IN WALKING [None]
  - DIZZINESS [None]
